FAERS Safety Report 12590347 (Version 2)
Quarter: 2016Q4

REPORT INFORMATION
  Report Type: Spontaneous
  Country: US (occurrence: US)
  Receive Date: 20160725
  Receipt Date: 20161011
  Transmission Date: 20170207
  Serious: Yes (Hospitalization)
  Sender: FDA-Public Use
  Company Number: US-ACTELION-A-US2016-138974

PATIENT
  Age: 36 Year
  Sex: Female

DRUGS (12)
  1. DIGOXIN. [Concomitant]
     Active Substance: DIGOXIN
  2. UPTRAVI [Suspect]
     Active Substance: SELEXIPAG
     Indication: PRODUCT USED FOR UNKNOWN INDICATION
     Route: 048
  3. RITUXAN [Concomitant]
     Active Substance: RITUXIMAB
  4. POTASSIUM [Concomitant]
     Active Substance: POTASSIUM
  5. REMODULIN [Suspect]
     Active Substance: TREPROSTINIL
     Indication: PRODUCT USED FOR UNKNOWN INDICATION
     Dosage: UNK
     Route: 058
  6. ADCIRCA [Concomitant]
     Active Substance: TADALAFIL
  7. ONDANSETRON [Concomitant]
     Active Substance: ONDANSETRON
  8. TRAMADOL. [Concomitant]
     Active Substance: TRAMADOL
  9. AMBRISENTAN [Suspect]
     Active Substance: AMBRISENTAN
     Dosage: 5 MG, QD
     Route: 065
     Dates: start: 20151124
  10. PANTOPRAZOLE [Concomitant]
     Active Substance: PANTOPRAZOLE SODIUM
  11. AMBRISENTAN [Suspect]
     Active Substance: AMBRISENTAN
     Indication: PRODUCT USED FOR UNKNOWN INDICATION
     Dosage: 5 MG, QD
     Route: 065
     Dates: start: 20150519
  12. FUROSEMIDE. [Concomitant]
     Active Substance: FUROSEMIDE

REACTIONS (5)
  - Dyspnoea [Unknown]
  - Musculoskeletal stiffness [Unknown]
  - Nausea [Recovered/Resolved]
  - Dyspnoea exertional [Unknown]
  - Decreased appetite [Unknown]

NARRATIVE: CASE EVENT DATE: 20160611
